FAERS Safety Report 17069260 (Version 2)
Quarter: 2019Q4

REPORT INFORMATION
  Report Type: Report from Study
  Country: None (occurrence: CO)
  Receive Date: 20191125
  Receipt Date: 20191218
  Transmission Date: 20200122
  Serious: Yes (Hospitalization, Other)
  Sender: FDA-Public Use
  Company Number: CO-ABBVIE-19K-036-3012655-00

PATIENT
  Age: 32 Year
  Sex: Female
  Weight: 56 kg

DRUGS (4)
  1. HUMIRA [Suspect]
     Active Substance: ADALIMUMAB
     Indication: PRODUCT USED FOR UNKNOWN INDICATION
     Route: 058
     Dates: start: 20170426
  2. CALCIUM [Concomitant]
     Active Substance: CALCIUM
     Indication: ANKYLOSING SPONDYLITIS
  3. HUMIRA [Suspect]
     Active Substance: ADALIMUMAB
     Indication: ANKYLOSING SPONDYLITIS
     Route: 058
     Dates: end: 20191105
  4. FOLIC ACID. [Concomitant]
     Active Substance: FOLIC ACID
     Indication: ANKYLOSING SPONDYLITIS
     Route: 065

REACTIONS (7)
  - Oedema peripheral [Recovering/Resolving]
  - Arthritis [Recovering/Resolving]
  - Oedema peripheral [Recovered/Resolved]
  - Pain in extremity [Recovered/Resolved]
  - Inflammation [Recovering/Resolving]
  - Lymphoedema [Recovering/Resolving]
  - Pain in extremity [Recovering/Resolving]

NARRATIVE: CASE EVENT DATE: 201905
